FAERS Safety Report 6753124-8 (Version None)
Quarter: 2010Q2

REPORT INFORMATION
  Report Type: 
  Country: None (occurrence: None)
  Receive Date: 20100603
  Receipt Date: 20100526
  Transmission Date: 20101027
  Serious: Yes (Other)
  Sender: FDA-Public Use
  Company Number: US-PFIZER INC-2010067063

PATIENT
  Sex: Male
  Weight: 77.098 kg

DRUGS (13)
  1. CELEBREX [Suspect]
     Indication: SPONDYLITIS
     Dosage: 200 MG, DAILY
     Route: 048
     Dates: end: 20100520
  2. ACETYLSALICYLIC ACID [Concomitant]
     Indication: PROPHYLAXIS
     Dosage: 325 MG, UNK
  3. PLAVIX [Concomitant]
     Indication: PROPHYLAXIS
     Dosage: 75 MG, UNK
  4. SYNTHROID [Concomitant]
     Dosage: 0.15 MG, UNK
  5. UROXATRAL [Concomitant]
     Dosage: 100 MG, UNK
  6. BETAPACE [Concomitant]
     Dosage: 80 MG, UNK
  7. ZETIA [Concomitant]
     Dosage: 10 MG, UNK
  8. CRESTOR [Concomitant]
     Dosage: 40 MG, UNK
  9. WARFARIN [Concomitant]
     Dosage: UNK
  10. FISH OIL [Concomitant]
     Dosage: 1000 MG, 2X/DAY
  11. CALCIUM WITH VITAMIN D [Concomitant]
     Dosage: [VITAMIN D 600MG]/[CALCIUM 400 MG]
  12. VITAMIN C [Concomitant]
     Dosage: 500 MG, UNK
  13. CENTRUM [Concomitant]
     Dosage: UNK

REACTIONS (1)
  - STENT PLACEMENT [None]
